FAERS Safety Report 5513527-6 (Version None)
Quarter: 2007Q4

REPORT INFORMATION
  Report Type: 
  Country: None (occurrence: None)
  Receive Date: 20071108
  Receipt Date: 20071024
  Transmission Date: 20080405
  Serious: Yes (Hospitalization, Disabling)
  Sender: FDA-Public Use
  Company Number: 2007S1011029

PATIENT
  Age: 67 Year
  Sex: Male

DRUGS (6)
  1. OMEPRAZOLE [Suspect]
     Indication: DRUG USE FOR UNKNOWN INDICATION
     Dosage: 20 MG, DAILY; ORAL
     Route: 048
     Dates: start: 20070902, end: 20071006
  2. AMLODIPINE [Concomitant]
  3. ASPIRIN [Concomitant]
  4. DIPYRIDAMOLE [Concomitant]
  5. GAVISCON /00480201/ [Concomitant]
  6. SIMVASTATIN [Concomitant]

REACTIONS (2)
  - NEPHRITIS INTERSTITIAL [None]
  - RENAL FAILURE ACUTE [None]
